FAERS Safety Report 6408572-2 (Version None)
Quarter: 2009Q4

REPORT INFORMATION
  Report Type: 
  Country: None (occurrence: None)
  Receive Date: 20091009
  Receipt Date: 20091002
  Transmission Date: 20100525
  Serious: Yes (Death, Hospitalization)
  Sender: FDA-Public Use
  Company Number: WAES 0906USA05528

PATIENT
  Age: 79 Year
  Sex: Female

DRUGS (7)
  1. FOSAMAX [Suspect]
     Indication: OSTEOPOROSIS
     Dosage: 25MG/WKY/PO
     Route: 048
     Dates: start: 20070625, end: 20070918
  2. TAB ASPARA CA (CALCIUM ASPARTATE) [Suspect]
     Indication: OSTEOPOROSIS
     Dosage: 400 MG/BID/ PO
     Route: 048
     Dates: start: 20070625, end: 20070905
  3. TAB ONEALFA (ALFACALCIDOL) [Suspect]
     Indication: OSTEOPOROSIS
     Dosage: 0.5 MICROGRAM/BID/PO
     Route: 048
     Dates: start: 20070625, end: 20070905
  4. INJ ELCITONIN (ELCATONIN) [Suspect]
     Indication: OSTEOPOROSIS
     Dosage: 1000 UNITS/WKY/IM
     Route: 030
     Dates: start: 20070618, end: 20070905
  5. SELBEX [Concomitant]
  6. SOLETON [Concomitant]
  7. TIZANIDINE HCL [Concomitant]

REACTIONS (4)
  - CHEILITIS [None]
  - DYSKINESIA [None]
  - MARASMUS [None]
  - PRURITUS [None]
